FAERS Safety Report 19192080 (Version 1)
Quarter: 2021Q2

REPORT INFORMATION
  Report Type: Spontaneous
  Country: US (occurrence: US)
  Receive Date: 20210428
  Receipt Date: 20210428
  Transmission Date: 20210717
  Serious: No
  Sender: FDA-Public Use
  Company Number: US-BAUSCH-BL-2021-011090

PATIENT
  Age: 54 Year
  Sex: Female

DRUGS (1)
  1. LUMIFY [Suspect]
     Active Substance: BRIMONIDINE TARTRATE
     Indication: SCLERAL DISCOLOURATION
     Route: 047
     Dates: start: 202103, end: 202103

REACTIONS (1)
  - Lacrimation increased [Recovered/Resolved]

NARRATIVE: CASE EVENT DATE: 202103
